FAERS Safety Report 8433694-4 (Version None)
Quarter: 2012Q2

REPORT INFORMATION
  Report Type: 
  Country: None (occurrence: None)
  Receive Date: 20120323
  Receipt Date: 20111125
  Transmission Date: 20120825
  Serious: Yes (Other)
  Sender: FDA-Public Use
  Company Number: 163-21880-11073129

PATIENT
  Age: 63 Year
  Sex: Male

DRUGS (6)
  1. OXYCODONE HCL [Concomitant]
  2. METOPROLOL TARTRATE [Concomitant]
  3. REVLIMID [Suspect]
     Indication: MULTIPLE MYELOMA
     Dosage: 25 MG, 1 IN 1 D PO, 10 MG, 1 IN 1 D, PO
     Route: 048
     Dates: start: 20110704
  4. REVLIMID [Suspect]
     Indication: MULTIPLE MYELOMA
     Dosage: 25 MG, 1 IN 1 D PO, 10 MG, 1 IN 1 D, PO
     Route: 048
     Dates: start: 20091218, end: 20100201
  5. VERAPAMIL [Concomitant]
  6. HYDROCHLOROTHIAZIDE [Concomitant]

REACTIONS (3)
  - LUNG NEOPLASM MALIGNANT [None]
  - BLOOD PRESSURE DECREASED [None]
  - SUPRAVENTRICULAR TACHYCARDIA [None]
